FAERS Safety Report 11474562 (Version 1)
Quarter: 2015Q3

REPORT INFORMATION
  Report Type: Spontaneous
  Country: US (occurrence: US)
  Receive Date: 20150908
  Receipt Date: 20150908
  Transmission Date: 20151125
  Serious: No
  Sender: FDA-Public Use
  Company Number: US-JAZZ-2014-US-008687

PATIENT
  Sex: Female

DRUGS (3)
  1. STIMULANTS [Suspect]
     Active Substance: UNSPECIFIED INGREDIENT
     Indication: ESSENTIAL TREMOR
     Dosage: UNK
     Dates: end: 20140710
  2. XYREM [Suspect]
     Active Substance: SODIUM OXYBATE
     Indication: NARCOLEPSY
     Dosage: 2.25 G, BID
     Route: 048
     Dates: start: 201406
  3. XYREM [Suspect]
     Active Substance: SODIUM OXYBATE
     Indication: CATAPLEXY

REACTIONS (2)
  - Condition aggravated [Recovering/Resolving]
  - Essential tremor [Recovering/Resolving]

NARRATIVE: CASE EVENT DATE: 2014
